FAERS Safety Report 13400948 (Version 1)
Quarter: 2017Q2

REPORT INFORMATION
  Report Type: Spontaneous
  Country: US (occurrence: US)
  Receive Date: 20170404
  Receipt Date: 20170404
  Transmission Date: 20170830
  Serious: No
  Sender: FDA-Public Use
  Company Number: US-GLAXOSMITHKLINE-US2017044161

PATIENT
  Sex: Male

DRUGS (1)
  1. ABREVA [Suspect]
     Active Substance: DOCOSANOL
     Indication: ORAL HERPES
     Dosage: UNK, FIRST DAY 6-8 TIMES
     Dates: start: 20170220

REACTIONS (2)
  - Lip discolouration [Not Recovered/Not Resolved]
  - Inappropriate schedule of drug administration [Unknown]
